FAERS Safety Report 5409788-4 (Version None)
Quarter: 2007Q3

REPORT INFORMATION
  Report Type: 
  Country: None (occurrence: None)
  Receive Date: 20070809
  Receipt Date: 20070725
  Transmission Date: 20080115
  Serious: Yes (Hospitalization, Other)
  Sender: FDA-Public Use
  Company Number: JP-ROCHE-509166

PATIENT
  Sex: Male
  Weight: 3.2 kg

DRUGS (3)
  1. CLONAZEPAM [Suspect]
     Indication: SCHIZOPHRENIA
  2. OLANZAPINE [Concomitant]
     Indication: SCHIZOPHRENIA
  3. SSRI [Concomitant]
     Indication: SCHIZOPHRENIA

REACTIONS (8)
  - BLOOD CREATINE PHOSPHOKINASE INCREASED [None]
  - CRYING [None]
  - IRRITABILITY [None]
  - MUSCLE SPASMS [None]
  - NYSTAGMUS [None]
  - PREMATURE RUPTURE OF MEMBRANES [None]
  - PYREXIA [None]
  - TACHYPNOEA [None]
